FAERS Safety Report 15933662 (Version 1)
Quarter: 2019Q1

REPORT INFORMATION
  Report Type: Report from Study
  Country: US (occurrence: US)
  Receive Date: 20190207
  Receipt Date: 20190207
  Transmission Date: 20190417
  Serious: Yes (Hospitalization)
  Sender: FDA-Public Use
  Company Number: US-EXELIXIS-XL18419018591

PATIENT
  Age: 76 Year
  Sex: Female

DRUGS (2)
  1. NIVOLUMAB [Suspect]
     Active Substance: NIVOLUMAB
     Indication: ENDOMETRIAL ADENOCARCINOMA
     Dosage: 240 MG, DAYS 1 AND 15
     Route: 042
     Dates: start: 20181205
  2. XL184 [Suspect]
     Active Substance: CABOZANTINIB
     Indication: ENDOMETRIAL ADENOCARCINOMA
     Dosage: 40 MG, QD
     Route: 048
     Dates: start: 20181205

REACTIONS (2)
  - Dysphagia [Unknown]
  - Stomatitis [Unknown]

NARRATIVE: CASE EVENT DATE: 20190102
